FAERS Safety Report 23066108 (Version 1)
Quarter: 2023Q4

REPORT INFORMATION
  Report Type: Spontaneous
  Country: PL (occurrence: PL)
  Receive Date: 20231014
  Receipt Date: 20231014
  Transmission Date: 20240110
  Serious: Yes (Other)
  Sender: FDA-Public Use
  Company Number: None

PATIENT
  Age: 57 Year
  Sex: Male
  Weight: 83 kg

DRUGS (3)
  1. OXALIPLATIN [Suspect]
     Active Substance: OXALIPLATIN
     Indication: Gastric cancer
     Dates: start: 20190821, end: 20200221
  2. FAMOGAST [Concomitant]
     Indication: Gastric cancer
     Dates: start: 20190821, end: 20200221
  3. DEXAMETHASONE [Concomitant]
     Active Substance: DEXAMETHASONE
     Indication: Gastric cancer
     Dates: start: 20190821, end: 20200221

REACTIONS (3)
  - Erythema [Recovered/Resolved]
  - Hypoaesthesia oral [Recovered/Resolved]
  - Chills [Recovered/Resolved]

NARRATIVE: CASE EVENT DATE: 20200221
